FAERS Safety Report 7226334-3 (Version None)
Quarter: 2011Q1

REPORT INFORMATION
  Report Type: 
  Country: None (occurrence: None)
  Receive Date: 20110114
  Receipt Date: 20110110
  Transmission Date: 20110831
  Serious: Yes (Death)
  Sender: FDA-Public Use
  Company Number: PHHY2011FR01877

PATIENT
  Age: 52 Year
  Sex: Male

DRUGS (3)
  1. ISOPTIN [Concomitant]
  2. TAREG [Suspect]
     Dosage: 160 MG, UNK
     Route: 048
  3. RASILEZ [Suspect]
     Indication: HYPERTENSION
     Route: 048

REACTIONS (2)
  - HYPERKALAEMIA [None]
  - BRADYCARDIA [None]
